FAERS Safety Report 10379396 (Version 1)
Quarter: 2014Q3

REPORT INFORMATION
  Report Type: Spontaneous
  Country: US (occurrence: None)
  Receive Date: 20140808
  Receipt Date: 20140808
  Transmission Date: 20150326
  Serious: Yes (Other)
  Sender: FDA-Public Use
  Company Number: AUR-APL-2014-08266

PATIENT
  Age: 72 Year
  Weight: 68 kg

DRUGS (11)
  1. NEXIUM [Suspect]
     Active Substance: ESOMEPRAZOLE MAGNESIUM
     Indication: GASTROOESOPHAGEAL REFLUX DISEASE
     Route: 048
     Dates: start: 1998
  2. METOPROLOL [Suspect]
     Active Substance: METOPROLOL
     Indication: CARDIAC DISORDER
     Route: 048
     Dates: start: 200901
  3. TOPROL XL [Suspect]
     Active Substance: METOPROLOL SUCCINATE
     Indication: PRODUCT USED FOR UNKNOWN INDICATION
  4. XANAX [Concomitant]
     Active Substance: ALPRAZOLAM
  5. NEXIUM [Suspect]
     Active Substance: ESOMEPRAZOLE MAGNESIUM
     Indication: HIATUS HERNIA
     Route: 048
     Dates: start: 1998
  6. OMEPRAZOLE. [Suspect]
     Active Substance: OMEPRAZOLE
     Indication: FLATULENCE
     Route: 048
  7. TYLENOL /00020001/ (PARACETAMOL) [Concomitant]
  8. CRESTOR [Suspect]
     Active Substance: ROSUVASTATIN CALCIUM
     Indication: BLOOD CHOLESTEROL
  9. ALEVE (NAPROXEN SODIUM) [Concomitant]
  10. CARAFATE [Concomitant]
     Active Substance: SUCRALFATE
  11. DIGOXIN. [Concomitant]
     Active Substance: DIGOXIN

REACTIONS (25)
  - Urinary tract infection [None]
  - Joint swelling [None]
  - Cellulitis [None]
  - Palpitations [None]
  - Drug effect increased [None]
  - Deafness [None]
  - Stress [None]
  - Hiatus hernia [None]
  - Dyspnoea [None]
  - Osteoarthritis [None]
  - Arthralgia [None]
  - Coronary artery occlusion [None]
  - Drug dose omission [None]
  - Eructation [None]
  - Weight decreased [None]
  - Drug ineffective [None]
  - Cataract [None]
  - Body height decreased [None]
  - Blood cholesterol increased [None]
  - Ulcer haemorrhage [None]
  - Panic attack [None]
  - Pain [None]
  - Hearing impaired [None]
  - Adverse event [None]
  - Intentional product misuse [None]

NARRATIVE: CASE EVENT DATE: 2003
